FAERS Safety Report 24566833 (Version 1)
Quarter: 2024Q4

REPORT INFORMATION
  Report Type: Spontaneous
  Country: GB (occurrence: GB)
  Receive Date: 20241030
  Receipt Date: 20241030
  Transmission Date: 20250114
  Serious: Yes (Other)
  Sender: NOVO NORDISK
  Company Number: GB-MHRA-TPP25396110C5027508YC1729240635956

PATIENT
  Age: 63 Year
  Sex: Male
  Weight: 138 kg

DRUGS (9)
  1. RYBELSUS [Suspect]
     Active Substance: SEMAGLUTIDE
     Indication: Ill-defined disorder
     Dosage: 3MG
     Route: 048
     Dates: start: 20240906
  2. LISINOPRIL [Concomitant]
     Active Substance: LISINOPRIL
     Indication: Ill-defined disorder
     Dosage: 1 DF QD TAKE ONE TABLET DAILY
     Dates: start: 20240906, end: 20241004
  3. MESALAMINE [Concomitant]
     Active Substance: MESALAMINE
     Indication: Ill-defined disorder
     Dosage: 3 DF EVERY 12 HOURS,(3 TABLETS TO BE TAKEN TWICE DAILY)
     Dates: start: 20210329
  4. CALCIUM CARBONATE\CHOLECALCIFEROL [Concomitant]
     Active Substance: CALCIUM CARBONATE\CHOLECALCIFEROL
     Indication: Ill-defined disorder
     Dosage: 2 DF QD,TWO TABLETS TO BE TAKEN ONCE DAILY.
     Dates: start: 20211027
  5. PENTASA [Concomitant]
     Active Substance: MESALAMINE
     Indication: Ill-defined disorder
     Dosage: 1 DF QD,INSERT ONE AT NIGHT
     Dates: start: 20230417
  6. TRAMADOL HYDROCHLORIDE [Concomitant]
     Active Substance: TRAMADOL HYDROCHLORIDE
     Indication: Ill-defined disorder
     Dosage: 1DF EVERY 12 HOURS(TAKE ONE TABLET TWICE DAILY)
     Dates: start: 20231129
  7. TOUJEO [Concomitant]
     Active Substance: INSULIN GLARGINE
     Indication: Ill-defined disorder
     Dosage: USE AS DIRECTED BY DIABETES CLINIC
     Dates: start: 20231208
  8. PREDNISOLONE [Concomitant]
     Active Substance: PREDNISOLONE
     Indication: Ill-defined disorder
     Dosage: ONE METERED APPLICATION (20 MG PREDNISOLONE) IN
     Dates: start: 20231220
  9. DAPAGLIFLOZIN [Concomitant]
     Active Substance: DAPAGLIFLOZIN
     Indication: Ill-defined disorder
     Dosage: 1 DF QD,TAKE ONE DAILY
     Dates: start: 20240221

REACTIONS (2)
  - Depressed mood [Recovered/Resolved]
  - Depression [Unknown]
